FAERS Safety Report 10879536 (Version 1)
Quarter: 2015Q1

REPORT INFORMATION
  Report Type: Spontaneous
  Country: IL (occurrence: None)
  Receive Date: 20150224
  Receipt Date: 20150224
  Transmission Date: 20150721
  Serious: Yes (Death)
  Sender: FDA-Public Use
  Company Number: None

PATIENT
  Age: 66 Year
  Sex: Female
  Weight: 66 kg

DRUGS (2)
  1. DAUNORUBICIN [Suspect]
     Active Substance: DAUNORUBICIN
     Dates: end: 20150206
  2. CYTARABINE. [Suspect]
     Active Substance: CYTARABINE
     Dates: end: 20150210

REACTIONS (6)
  - Cough [None]
  - Hypoxia [None]
  - Respiratory disorder [None]
  - Lung infiltration [None]
  - Simplex virus test positive [None]
  - Pyrexia [None]

NARRATIVE: CASE EVENT DATE: 20150214
